FAERS Safety Report 10551109 (Version 5)
Quarter: 2015Q1

REPORT INFORMATION
  Report Type: Spontaneous
  Country: JP (occurrence: JP)
  Receive Date: 20141029
  Receipt Date: 20150226
  Transmission Date: 20150720
  Serious: Yes (Hospitalization, Other)
  Sender: FDA-Public Use
  Company Number: JP-ASTELLAS-2014JP023667

PATIENT
  Age: 29 Year
  Sex: Female
  Weight: 50 kg

DRUGS (14)
  1. MYSLEE [Concomitant]
     Active Substance: ZOLPIDEM TARTRATE
     Indication: DEPRESSION
     Route: 048
  2. PROGRAF [Suspect]
     Active Substance: TACROLIMUS\TACROLIMUS ANHYDROUS
     Route: 048
     Dates: start: 20141017, end: 20141017
  3. LOXONIN [Concomitant]
     Active Substance: LOXOPROFEN SODIUM
     Indication: MYASTHENIA GRAVIS
     Route: 048
  4. ALFAROL [Concomitant]
     Active Substance: ALFACALCIDOL
     Indication: MYASTHENIA GRAVIS
     Route: 048
  5. BAKTAR [Concomitant]
     Active Substance: SULFAMETHOXAZOLE\TRIMETHOPRIM
     Indication: MYASTHENIA GRAVIS
     Route: 048
  6. PROGRAF [Suspect]
     Active Substance: TACROLIMUS\TACROLIMUS ANHYDROUS
     Route: 048
     Dates: start: 20141022
  7. TAKEPRON [Concomitant]
     Active Substance: LANSOPRAZOLE
     Indication: MYASTHENIA GRAVIS
     Route: 048
  8. SEPAZON [Concomitant]
     Active Substance: CLOXAZOLAM
     Indication: DEPRESSION
     Route: 048
     Dates: start: 20141017, end: 20141017
  9. PROGRAF [Suspect]
     Active Substance: TACROLIMUS\TACROLIMUS ANHYDROUS
     Indication: MYASTHENIA GRAVIS
     Route: 048
     Dates: end: 20141016
  10. HANGEKOBOKUTO [Concomitant]
     Indication: ADJUSTMENT DISORDER
     Route: 048
  11. LAMICTAL [Concomitant]
     Active Substance: LAMOTRIGINE
     Indication: DEPRESSION
     Route: 048
  12. DEPAS [Suspect]
     Active Substance: ETIZOLAM
     Indication: DEPRESSION
     Route: 048
     Dates: start: 20141017, end: 20141017
  13. DEPAS [Suspect]
     Active Substance: ETIZOLAM
     Indication: ADJUSTMENT DISORDER
     Route: 048
     Dates: end: 20141016
  14. PREDNISOLONE. [Concomitant]
     Active Substance: PREDNISOLONE
     Indication: MYASTHENIA GRAVIS
     Route: 048

REACTIONS (4)
  - Somnolence [Recovered/Resolved]
  - Suicide attempt [Recovering/Resolving]
  - Intentional overdose [Unknown]
  - Abdominal pain upper [Recovered/Resolved]

NARRATIVE: CASE EVENT DATE: 20141017
